FAERS Safety Report 16487577 (Version 1)
Quarter: 2019Q2

REPORT INFORMATION
  Report Type: Spontaneous
  Country: GT (occurrence: GT)
  Receive Date: 20190627
  Receipt Date: 20190627
  Transmission Date: 20190711
  Serious: Yes (Other)
  Sender: FDA-Public Use
  Company Number: GT-BAYER-2019-118534

PATIENT
  Age: 54 Year
  Sex: Male

DRUGS (1)
  1. NEXAVAR [Suspect]
     Active Substance: SORAFENIB
     Indication: HEPATOCELLULAR CARCINOMA
     Dosage: UNK
     Dates: start: 20190608

REACTIONS (5)
  - Amnesia [Not Recovered/Not Resolved]
  - Disorientation [Recovered/Resolved]
  - Disorientation [Not Recovered/Not Resolved]
  - Disorientation [Recovered/Resolved]
  - Prosopagnosia [Not Recovered/Not Resolved]

NARRATIVE: CASE EVENT DATE: 201906
